FAERS Safety Report 16402357 (Version 1)
Quarter: 2019Q2

REPORT INFORMATION
  Report Type: Spontaneous
  Country: US (occurrence: US)
  Receive Date: 20190607
  Receipt Date: 20190607
  Transmission Date: 20190711
  Serious: Yes (Other)
  Sender: FDA-Public Use
  Company Number: US-CIPLA LTD.-2019US04316

PATIENT

DRUGS (1)
  1. TOPIRAMATE. [Suspect]
     Active Substance: TOPIRAMATE
     Indication: EPILEPSY
     Dosage: 125 MILLIGRAM, DAILY
     Route: 065

REACTIONS (4)
  - Metabolic acidosis [Unknown]
  - Renal tubular acidosis [Unknown]
  - Familial periodic paralysis [Unknown]
  - Potassium wasting nephropathy [Unknown]
